FAERS Safety Report 5679705-0 (Version None)
Quarter: 2008Q1

REPORT INFORMATION
  Report Type: 
  Country: None (occurrence: None)
  Receive Date: 20080321
  Receipt Date: 20080305
  Transmission Date: 20080703
  Serious: Yes (Death, Hospitalization)
  Sender: FDA-Public Use
  Company Number: ITPFP-S-20080004 - V001

PATIENT
  Age: 47 Year
  Sex: Female

DRUGS (2)
  1. NAVELBINE [Suspect]
     Indication: BREAST CANCER METASTATIC
     Dosage: INTRAVENOUS
     Route: 042
  2. HERCEPTIN [Suspect]
     Dosage: INTRAVENOUS
     Route: 042

REACTIONS (3)
  - BRAIN INJURY [None]
  - CONVULSION [None]
  - SOMNOLENCE [None]
